FAERS Safety Report 17870170 (Version 1)
Quarter: 2020Q2

REPORT INFORMATION
  Report Type: Spontaneous
  Country: US (occurrence: US)
  Receive Date: 20200608
  Receipt Date: 20200608
  Transmission Date: 20200714
  Serious: No
  Sender: FDA-Public Use
  Company Number: US-SA-2020SA146458

PATIENT

DRUGS (4)
  1. TRULANCE [Concomitant]
     Active Substance: PLECANATIDE
  2. SPIRONOLACTON [Concomitant]
     Active Substance: SPIRONOLACTONE
  3. VENLAFAXINE [Concomitant]
     Active Substance: VENLAFAXINE HYDROCHLORIDE
  4. DUPIXENT [Suspect]
     Active Substance: DUPILUMAB
     Indication: DERMATITIS ATOPIC
     Dosage: 300 MG, QOW
     Route: 058
     Dates: start: 20190425

REACTIONS (1)
  - Eczema [Not Recovered/Not Resolved]
